FAERS Safety Report 16031789 (Version 7)
Quarter: 2020Q2

REPORT INFORMATION
  Report Type: Report from Study
  Country: US (occurrence: US)
  Receive Date: 20190304
  Receipt Date: 20200504
  Transmission Date: 20200713
  Serious: Yes (Death, Hospitalization)
  Sender: FDA-Public Use
  Company Number: US-ACTELION-A-NJ2019-186710

PATIENT
  Age: 69 Year
  Sex: Female

DRUGS (41)
  1. NORCO [Concomitant]
     Active Substance: ACETAMINOPHEN\HYDROCODONE BITARTRATE
  2. VITAMIN C [Concomitant]
     Active Substance: ASCORBIC ACID
  3. BENZONATATE. [Concomitant]
     Active Substance: BENZONATATE
  4. OXYGEN. [Concomitant]
     Active Substance: OXYGEN
     Dosage: 15 L, PER MIN
  5. CODEINE [Concomitant]
     Active Substance: CODEINE
  6. ALBUTEROL. [Concomitant]
     Active Substance: ALBUTEROL
  7. ATORVASTATIN [Concomitant]
     Active Substance: ATORVASTATIN
  8. SILDENAFIL. [Concomitant]
     Active Substance: SILDENAFIL
  9. QVAR [Concomitant]
     Active Substance: BECLOMETHASONE DIPROPIONATE
  10. SPIRIVA [Concomitant]
     Active Substance: TIOTROPIUM BROMIDE MONOHYDRATE
  11. FENTANYL. [Concomitant]
     Active Substance: FENTANYL
  12. OPSUMIT [Suspect]
     Active Substance: MACITENTAN
     Indication: PULMONARY ARTERIAL HYPERTENSION
     Dosage: 10 MG, QD
     Route: 048
     Dates: start: 20190109, end: 202003
  13. FLONASE [Concomitant]
     Active Substance: FLUTICASONE PROPIONATE
  14. NARCAN [Concomitant]
     Active Substance: NALOXONE HYDROCHLORIDE
  15. MVI [Concomitant]
     Active Substance: VITAMINS
  16. OXYGEN. [Concomitant]
     Active Substance: OXYGEN
     Dosage: 2 L
  17. ONDANSETRON [Concomitant]
     Active Substance: ONDANSETRON
  18. ALVESCO [Concomitant]
     Active Substance: CICLESONIDE
  19. VITAMIN B COMPLEX WITH C [Concomitant]
     Active Substance: ASCORBIC ACID\CALCIUM PANTOTHENATE\CYANOCOBALAMIN\NIACINAMIDE\PYRIDOXINE HYDROCHLORIDE\RIBOFLAVIN\THIAMINE MONONITRATE
  20. METOLAZONE. [Concomitant]
     Active Substance: METOLAZONE
  21. COLACE [Concomitant]
     Active Substance: DOCUSATE SODIUM
  22. GLIPIZIDE. [Concomitant]
     Active Substance: GLIPIZIDE
  23. MONTELUKAST [Concomitant]
     Active Substance: MONTELUKAST SODIUM
  24. VITAMIN D3 [Concomitant]
     Active Substance: CHOLECALCIFEROL
  25. MAGNESIUM [Concomitant]
     Active Substance: MAGNESIUM
  26. VOLTAREN [Concomitant]
     Active Substance: DICLOFENAC SODIUM
  27. GUAIFENESIN. [Concomitant]
     Active Substance: GUAIFENESIN
  28. PROCHLORPERAZINE. [Concomitant]
     Active Substance: PROCHLORPERAZINE
  29. DECLOFENAC [Concomitant]
     Active Substance: DICLOFENAC SODIUM
  30. CLOPIDOGREL [Concomitant]
     Active Substance: CLOPIDOGREL BISULFATE
  31. SINGULAIR [Concomitant]
     Active Substance: MONTELUKAST SODIUM
  32. PLAVIX [Concomitant]
     Active Substance: CLOPIDOGREL BISULFATE
  33. ASPIRIN. [Concomitant]
     Active Substance: ASPIRIN
  34. FERROUS SULFATE. [Concomitant]
     Active Substance: FERROUS SULFATE
  35. MIRTAZAPINE. [Concomitant]
     Active Substance: MIRTAZAPINE
  36. LASIX [Concomitant]
     Active Substance: FUROSEMIDE
     Dosage: UNK
  37. TEMAZEPAM. [Concomitant]
     Active Substance: TEMAZEPAM
  38. POTASSIUM CHLORIDE. [Concomitant]
     Active Substance: POTASSIUM CHLORIDE
  39. SOLU-MEDROL [Concomitant]
     Active Substance: METHYLPREDNISOLONE SODIUM SUCCINATE
  40. HYDROMORPHONE [Concomitant]
     Active Substance: HYDROMORPHONE
  41. ALLOPURINOL. [Concomitant]
     Active Substance: ALLOPURINOL

REACTIONS (33)
  - Death [Fatal]
  - Anion gap increased [Unknown]
  - Dyspnoea [Unknown]
  - Pulmonary hypertension [Unknown]
  - Pyrexia [Unknown]
  - Upper respiratory tract infection [Unknown]
  - Chronic obstructive pulmonary disease [Unknown]
  - Brain natriuretic peptide decreased [Unknown]
  - Vision blurred [Unknown]
  - Hospice care [Unknown]
  - Type 2 diabetes mellitus [Unknown]
  - Respiratory failure [Unknown]
  - Platelet transfusion [Unknown]
  - Multiple organ dysfunction syndrome [Unknown]
  - Cardiac failure congestive [Unknown]
  - Atrial fibrillation [Unknown]
  - Syncope [Unknown]
  - Hypovolaemia [Unknown]
  - Viral infection [Unknown]
  - Pancytopenia [Unknown]
  - Hypotension [Unknown]
  - Blood creatinine increased [Recovering/Resolving]
  - Pneumonia [Recovering/Resolving]
  - Lung opacity [Recovering/Resolving]
  - Sinusitis [Unknown]
  - Left ventricular failure [Unknown]
  - Papilloedema [Unknown]
  - Fluid overload [Unknown]
  - Blood chloride decreased [Unknown]
  - Sepsis [Unknown]
  - Lung adenocarcinoma [Unknown]
  - Blood urea increased [Recovering/Resolving]
  - Headache [Unknown]

NARRATIVE: CASE EVENT DATE: 20190213
